FAERS Safety Report 16236895 (Version 1)
Quarter: 2019Q2

REPORT INFORMATION
  Report Type: Report from Study
  Country: IT (occurrence: IT)
  Receive Date: 20190425
  Receipt Date: 20190425
  Transmission Date: 20190711
  Serious: Yes (Hospitalization, Other)
  Sender: FDA-Public Use
  Company Number: IT-TEVA-2019-IT-1040709

PATIENT
  Age: 70 Year
  Sex: Female

DRUGS (10)
  1. CANDESARTAN. [Suspect]
     Active Substance: CANDESARTAN
     Route: 065
  2. METFORMIN [Suspect]
     Active Substance: METFORMIN HYDROCHLORIDE
     Indication: TYPE 2 DIABETES MELLITUS
     Dosage: 3000 MILLIGRAM DAILY;
  3. ASPIRIN. [Concomitant]
     Active Substance: ASPIRIN
  4. CLONIDINE. [Concomitant]
     Active Substance: CLONIDINE
  5. NEBIVOLOL. [Concomitant]
     Active Substance: NEBIVOLOL
  6. LERCANIDIPINE [Concomitant]
     Active Substance: LERCANIDIPINE
  7. LINAGLIPTIN [Concomitant]
     Active Substance: LINAGLIPTIN
  8. ATORVASTATIN [Concomitant]
     Active Substance: ATORVASTATIN
  9. RANITIDINE. [Concomitant]
     Active Substance: RANITIDINE
  10. DOXAZOSIN [Concomitant]
     Active Substance: DOXAZOSIN\DOXAZOSIN MESYLATE

REACTIONS (4)
  - Product prescribing error [Unknown]
  - Lactic acidosis [Recovering/Resolving]
  - Toxicity to various agents [Recovering/Resolving]
  - Acute kidney injury [Recovering/Resolving]
